FAERS Safety Report 15815163 (Version 1)
Quarter: 2019Q1

REPORT INFORMATION
  Report Type: Spontaneous
  Country: GB (occurrence: GB)
  Receive Date: 20190112
  Receipt Date: 20190112
  Transmission Date: 20190417
  Serious: Yes (Other)
  Sender: FDA-Public Use
  Company Number: GB-ACCORD-101175

PATIENT
  Age: 81 Year
  Sex: Female
  Weight: 64 kg

DRUGS (14)
  1. BETAHISTINE [Concomitant]
     Active Substance: BETAHISTINE
     Dates: start: 20171212
  2. ESTRADIOL. [Concomitant]
     Active Substance: ESTRADIOL
     Dosage: USE AS DIRECTED
  3. VENTOLIN [Concomitant]
     Active Substance: ALBUTEROL SULFATE
     Route: 055
     Dates: start: 20171212
  4. LEVOTHYROXINE. [Concomitant]
     Active Substance: LEVOTHYROXINE
     Dosage: EACH MORNING
     Dates: start: 20171212
  5. ACETYLSALICYLIC ACID [Concomitant]
     Active Substance: ASPIRIN
     Dates: start: 20171228
  6. LOSARTAN. [Concomitant]
     Active Substance: LOSARTAN
     Dates: start: 20171212
  7. FENBID [Concomitant]
     Active Substance: IBUPROFEN
     Dosage: APPLY
     Dates: start: 20180115, end: 20180125
  8. LORATADINE. [Concomitant]
     Active Substance: LORATADINE
     Dates: start: 20171228, end: 20180127
  9. ALLOPURINOL. [Concomitant]
     Active Substance: ALLOPURINOL
     Dates: start: 20171212
  10. ATORVASTATIN [Concomitant]
     Active Substance: ATORVASTATIN
     Dates: start: 20171212, end: 20180213
  11. ROSUVASTATIN. [Suspect]
     Active Substance: ROSUVASTATIN
     Indication: PRODUCT USED FOR UNKNOWN INDICATION
  12. SERETIDE [Concomitant]
     Active Substance: FLUTICASONE PROPIONATE\SALMETEROL XINAFOATE
     Route: 055
     Dates: start: 20171212
  13. LACTULOSE. [Concomitant]
     Active Substance: LACTULOSE
     Dates: start: 20171228, end: 20180107
  14. EZETIMIBE. [Concomitant]
     Active Substance: EZETIMIBE
     Dates: start: 20171212

REACTIONS (1)
  - Anaphylactic reaction [Recovered/Resolved]

NARRATIVE: CASE EVENT DATE: 20180313
